FAERS Safety Report 8122999-2 (Version None)
Quarter: 2012Q1

REPORT INFORMATION
  Report Type: 
  Country: None (occurrence: None)
  Receive Date: 20120206
  Receipt Date: 20120123
  Transmission Date: 20120608
  Serious: Yes (Hospitalization, Disabling, Other)
  Sender: FDA-Public Use
  Company Number: 2008AL008837

PATIENT
  Age: 62 Year
  Sex: Male
  Weight: 103.8737 kg

DRUGS (52)
  1. GLYBURIDE [Concomitant]
  2. TYLOX [Concomitant]
  3. GUAIFENEX [Concomitant]
  4. DILTIAZEM HCL [Concomitant]
  5. CIALIS [Concomitant]
  6. INSULIN [Concomitant]
  7. OPTHALMIC SOLUTION [Concomitant]
  8. TESTOSTERONE [Concomitant]
  9. VALIUM [Concomitant]
  10. TOPROL-XL [Concomitant]
  11. AMBIEN [Concomitant]
  12. ALPRAZOLAM [Concomitant]
  13. CHANTIX [Concomitant]
  14. ASPIRIN [Concomitant]
  15. BABY ASPIRINE [Concomitant]
  16. FLU SHOT [Concomitant]
  17. AMOXICILLIN [Concomitant]
  18. NORTRIPTYLINE HCL [Concomitant]
  19. ZETIA [Concomitant]
  20. HUMULIN R [Concomitant]
  21. CARAFATE [Concomitant]
  22. CYCLOBENZAPRINE [Concomitant]
  23. AMIODARONE HCL [Concomitant]
  24. EFFEXOR [Concomitant]
  25. LEVAQUIN [Concomitant]
  26. CITALOPRAM HYDROBROMIDE [Concomitant]
  27. GLYLURID [Concomitant]
  28. NAPROSYN [Concomitant]
  29. PLAVIX [Concomitant]
  30. FUROSEMIDE [Concomitant]
  31. METFORMIN HCL [Concomitant]
  32. BENZONATETE [Concomitant]
  33. SERTRALINE HYDROCHLORIDE [Concomitant]
  34. ROCEPHIN [Concomitant]
  35. DIGOXIN [Suspect]
     Indication: PRODUCT USED FOR UNKNOWN INDICATION
     Dosage: 0.375 MG;QD;PO
     Route: 048
     Dates: start: 20030707
  36. VIAGRA [Concomitant]
  37. APAP TAB [Concomitant]
  38. LISINOPRIL [Concomitant]
  39. XANAX [Concomitant]
  40. LIPITOR [Concomitant]
  41. SPIRONOLACTONE [Concomitant]
  42. DEPAKOTE [Concomitant]
  43. NEXIUM [Concomitant]
  44. PAXIL [Concomitant]
  45. GLYNASE [Concomitant]
  46. COUMADIN [Concomitant]
  47. METOCLOPRAMIDE [Concomitant]
  48. ISOMETH-APAP [Concomitant]
  49. BUPROPION HCL [Concomitant]
  50. IONAMIN-30 [Concomitant]
  51. ZOLOFT [Concomitant]
  52. CYMBALTA [Concomitant]

REACTIONS (95)
  - HEADACHE [None]
  - VISUAL ACUITY REDUCED [None]
  - DIZZINESS [None]
  - OBESITY [None]
  - HYPERTROPHY [None]
  - ERYTHEMA [None]
  - HYPERTENSION [None]
  - TREATMENT NONCOMPLIANCE [None]
  - POST-TRAUMATIC STRESS DISORDER [None]
  - BALANCE DISORDER [None]
  - OROPHARYNGEAL PAIN [None]
  - DIVERTICULUM [None]
  - CORONARY ARTERY OCCLUSION [None]
  - DYSSTASIA [None]
  - DIABETES MELLITUS [None]
  - BLOOD TRIGLYCERIDES INCREASED [None]
  - DERMATITIS [None]
  - ARTHRALGIA [None]
  - BOREDOM [None]
  - SINUSITIS [None]
  - CARDIOMEGALY [None]
  - FACIAL PARESIS [None]
  - CEREBROVASCULAR ACCIDENT [None]
  - DYSPNOEA [None]
  - ACUTE MYOCARDIAL INFARCTION [None]
  - MITRAL VALVE INCOMPETENCE [None]
  - AORTIC DILATATION [None]
  - MALIGNANT MELANOMA [None]
  - DEATH OF RELATIVE [None]
  - ANXIETY [None]
  - MUSCULOSKELETAL CHEST PAIN [None]
  - MOBILITY DECREASED [None]
  - DEPRESSION [None]
  - CEREBRAL ISCHAEMIA [None]
  - COUGH [None]
  - BRONCHITIS [None]
  - ATAXIA [None]
  - ABDOMINAL PAIN UPPER [None]
  - ABDOMINAL DISTENSION [None]
  - FATIGUE [None]
  - CEREBRAL INFARCTION [None]
  - ATRIAL FIBRILLATION [None]
  - TRICUSPID VALVE INCOMPETENCE [None]
  - AORTIC VALVE INCOMPETENCE [None]
  - CORONARY ARTERY DISEASE [None]
  - STRESS [None]
  - ERECTILE DYSFUNCTION [None]
  - PARAESTHESIA [None]
  - MUSCLE DISORDER [None]
  - MIGRAINE [None]
  - EATING DISORDER [None]
  - ANAL ABSCESS [None]
  - NEUROPATHY PERIPHERAL [None]
  - WEIGHT INCREASED [None]
  - DISTURBANCE IN ATTENTION [None]
  - INSOMNIA [None]
  - DUODENITIS [None]
  - COLONIC POLYP [None]
  - HEMIANOPIA HOMONYMOUS [None]
  - PALPITATIONS [None]
  - CARDIAC DISORDER [None]
  - SCOTOMA [None]
  - HEMIANOPIA [None]
  - CLUSTER HEADACHE [None]
  - ANGER [None]
  - DYSPHEMIA [None]
  - LIP SWELLING [None]
  - SOMNOLENCE [None]
  - TANDEM GAIT TEST ABNORMAL [None]
  - LOSS OF CONSCIOUSNESS [None]
  - FALL [None]
  - PANIC ATTACK [None]
  - BLOOD CHOLESTEROL INCREASED [None]
  - EMBOLISM [None]
  - FURUNCLE [None]
  - MALAISE [None]
  - ABDOMINAL HERNIA [None]
  - IMPAIRED DRIVING ABILITY [None]
  - PAIN IN EXTREMITY [None]
  - ASTHENIA [None]
  - CEREBRAL SMALL VESSEL ISCHAEMIC DISEASE [None]
  - DRUG DEPENDENCE [None]
  - ARRHYTHMIA [None]
  - VISUAL FIELD DEFECT [None]
  - UPPER RESPIRATORY TRACT INFECTION [None]
  - DISCOMFORT [None]
  - ABDOMINAL PAIN [None]
  - SLUGGISHNESS [None]
  - INFLUENZA [None]
  - PNEUMONIA [None]
  - NASAL CONGESTION [None]
  - SCAB [None]
  - VISUAL IMPAIRMENT [None]
  - LEFT ATRIAL DILATATION [None]
  - GASTRITIS [None]
